FAERS Safety Report 9112643 (Version 5)
Quarter: 2013Q4

REPORT INFORMATION
  Report Type: Spontaneous
  Country: US (occurrence: US)
  Receive Date: 20130211
  Receipt Date: 20131202
  Transmission Date: 20140711
  Serious: Yes (Hospitalization, Other)
  Sender: FDA-Public Use
  Company Number: US-MERCK-1302USA004249

PATIENT
  Sex: Female
  Weight: 62.13 kg

DRUGS (5)
  1. FOSAMAX [Suspect]
     Indication: BONE LOSS
     Dosage: 10 MG, QD
     Route: 048
     Dates: start: 199801, end: 200804
  2. FOSAMAX [Suspect]
     Indication: OSTEOPOROSIS PROPHYLAXIS
     Dosage: 70 MG, QW
     Route: 048
     Dates: end: 20080430
  3. FOSAMAX [Suspect]
     Dosage: UNK
     Route: 048
     Dates: start: 199801, end: 201112
  4. ALENDRONATE SODIUM [Suspect]
     Indication: BONE LOSS
     Dosage: 70 MG, QW
     Route: 048
     Dates: start: 200805, end: 201012
  5. ALENDRONATE SODIUM [Suspect]
     Indication: OSTEOPOROSIS PROPHYLAXIS

REACTIONS (26)
  - Femur fracture [Unknown]
  - Open reduction of fracture [Unknown]
  - Cholecystectomy [Unknown]
  - Bone deformity [Unknown]
  - Pain in extremity [Unknown]
  - Meniscus injury [Unknown]
  - Hypothyroidism [Unknown]
  - Calcium deficiency [Unknown]
  - Vitamin D deficiency [Unknown]
  - Hyperlipidaemia [Unknown]
  - Adverse event [Unknown]
  - Insomnia [Unknown]
  - Infection [Unknown]
  - Hypokalaemia [Unknown]
  - Osteopenia [Unknown]
  - Osteoporosis [Unknown]
  - Chondromalacia [Unknown]
  - Osteoarthritis [Unknown]
  - Aortic arteriosclerosis [Unknown]
  - Intervertebral disc degeneration [Unknown]
  - Osteoarthritis [Unknown]
  - Bursitis [Unknown]
  - Sciatica [Unknown]
  - Genital herpes [Unknown]
  - Drug ineffective [Unknown]
  - Back pain [Unknown]
